FAERS Safety Report 8197202-8 (Version None)
Quarter: 2012Q1

REPORT INFORMATION
  Report Type: 
  Country: None (occurrence: None)
  Receive Date: 20120309
  Receipt Date: 20120307
  Transmission Date: 20120608
  Serious: No
  Sender: FDA-Public Use
  Company Number: US-TEVA-326723USA

PATIENT
  Sex: Female
  Weight: 75.364 kg

DRUGS (3)
  1. PLAN B ONE-STEP [Suspect]
     Indication: POST COITAL CONTRACEPTION
     Dosage: 1.5 MILLIGRAM;
     Route: 048
     Dates: start: 20120207, end: 20120207
  2. METRONIDAZOLE [Concomitant]
     Indication: BACTERIAL INFECTION
  3. LOESTRIN 1.5/30 [Concomitant]
     Indication: CONTRACEPTION
     Dates: start: 20120201

REACTIONS (4)
  - DRUG INEFFECTIVE [None]
  - PREGNANCY AFTER POST COITAL CONTRACEPTION [None]
  - MENSTRUATION DELAYED [None]
  - ABDOMINAL PAIN [None]
